FAERS Safety Report 10900040 (Version 1)
Quarter: 2015Q1

REPORT INFORMATION
  Report Type: Spontaneous
  Country: US (occurrence: US)
  Receive Date: 20150310
  Receipt Date: 20150310
  Transmission Date: 20150721
  Serious: No
  Sender: FDA-Public Use
  Company Number: US-TEVA-534905USA

PATIENT
  Age: 53 Year
  Sex: Female

DRUGS (1)
  1. CAPECITABINE. [Suspect]
     Active Substance: CAPECITABINE
     Dosage: 4 TABLETS BID MONDAY THROUGH FRIDAY WITH RADIATION
     Route: 048

REACTIONS (2)
  - Dysuria [Unknown]
  - Anxiety [Unknown]
